FAERS Safety Report 19855789 (Version 1)
Quarter: 2021Q3

REPORT INFORMATION
  Report Type: Spontaneous
  Country: US (occurrence: US)
  Receive Date: 20210920
  Receipt Date: 20210920
  Transmission Date: 20211014
  Serious: No
  Sender: FDA-Public Use
  Company Number: US-TEVA-2021-US-1952259

PATIENT
  Age: 36 Year
  Sex: Female

DRUGS (2)
  1. AJOVY [Suspect]
     Active Substance: FREMANEZUMAB-VFRM
     Indication: HEADACHE
     Route: 065
     Dates: start: 202009
  2. AJOVY [Suspect]
     Active Substance: FREMANEZUMAB-VFRM
     Route: 065
     Dates: start: 20210907

REACTIONS (6)
  - Migraine [Unknown]
  - Product storage error [Unknown]
  - Drug ineffective [Unknown]
  - Poor quality product administered [Unknown]
  - Sensitivity to weather change [Unknown]
  - Product supply issue [Unknown]

NARRATIVE: CASE EVENT DATE: 2020
